FAERS Safety Report 7386802-0 (Version None)
Quarter: 2011Q1

REPORT INFORMATION
  Report Type: 
  Country: None (occurrence: None)
  Receive Date: 20110323
  Receipt Date: 20110310
  Transmission Date: 20110831
  Serious: Yes (Other)
  Sender: FDA-Public Use
  Company Number: IDR-00468

PATIENT
  Sex: Female

DRUGS (1)
  1. INDERAL LA [Suspect]
     Indication: MIGRAINE
     Dosage: 400 MG ONCE
     Route: 048

REACTIONS (3)
  - FEELING COLD [None]
  - ACCIDENTAL OVERDOSE [None]
  - DIZZINESS [None]
